FAERS Safety Report 14564234 (Version 3)
Quarter: 2018Q1

REPORT INFORMATION
  Report Type: Spontaneous
  Country: JP (occurrence: JP)
  Receive Date: 20180222
  Receipt Date: 20180323
  Transmission Date: 20180509
  Serious: Yes (Other)
  Sender: FDA-Public Use
  Company Number: JP-VIIV HEALTHCARE LIMITED-JP2018027559

PATIENT
  Age: 41 Year
  Sex: Male

DRUGS (23)
  1. PHENOBARBITAL. [Suspect]
     Active Substance: PHENOBARBITAL
     Indication: ANTIRETROVIRAL THERAPY
     Dosage: 40 MG, QD
     Route: 065
  2. PHENERGAN [Concomitant]
     Active Substance: PROMETHAZINE HYDROCHLORIDE
     Dosage: 25 MG, QD
     Route: 065
  3. PHENERGAN [Concomitant]
     Active Substance: PROMETHAZINE HYDROCHLORIDE
     Dosage: 12.5 MG, QD
     Route: 065
  4. DOLUTEGRAVIR [Suspect]
     Active Substance: DOLUTEGRAVIR
     Indication: HIV INFECTION
  5. DULOXETINE. [Concomitant]
     Active Substance: DULOXETINE
     Indication: PRODUCT USED FOR UNKNOWN INDICATION
     Dosage: 40 MG, QD
     Route: 065
  6. CHLORPROMAZINE HYDROCHLORIDE. [Concomitant]
     Active Substance: CHLORPROMAZINE HYDROCHLORIDE
     Indication: PRODUCT USED FOR UNKNOWN INDICATION
     Dosage: 25 MG, QD
  7. CHLORPROMAZINE HYDROCHLORIDE. [Concomitant]
     Active Substance: CHLORPROMAZINE HYDROCHLORIDE
     Dosage: 12.5 MG, QD
  8. PHENOBARBITAL. [Suspect]
     Active Substance: PHENOBARBITAL
     Dosage: 30 MG, QD
     Route: 065
  9. DOLUTEGRAVIR [Suspect]
     Active Substance: DOLUTEGRAVIR
     Indication: ANTIRETROVIRAL THERAPY
     Dosage: 50 MG, QD
     Route: 065
     Dates: start: 20150611
  10. LORAZEPAM. [Concomitant]
     Active Substance: LORAZEPAM
     Indication: PRODUCT USED FOR UNKNOWN INDICATION
     Dosage: 4 TIMES DAILY
     Route: 065
  11. MIRTAZAPINE. [Concomitant]
     Active Substance: MIRTAZAPINE
     Indication: PRODUCT USED FOR UNKNOWN INDICATION
     Dosage: 45 MG, QD
  12. BIPERIDEN HYDROCHLORIDE [Concomitant]
     Active Substance: BIPERIDEN HYDROCHLORIDE
     Indication: PRODUCT USED FOR UNKNOWN INDICATION
     Dosage: THREE TIMES DAILY
  13. PHENERGAN [Concomitant]
     Active Substance: PROMETHAZINE HYDROCHLORIDE
     Dosage: 12.5 MG, QD
     Route: 065
  14. FLUNITRAZEPAM [Concomitant]
     Active Substance: FLUNITRAZEPAM
     Indication: PRODUCT USED FOR UNKNOWN INDICATION
     Dosage: 4 TIMES DAILY
  15. PEROSPIRONE HYDROCHLORIDE HYDRATE [Concomitant]
     Active Substance: PEROSPIRONE HYDROCHLORIDE HYDRATE
     Indication: PRODUCT USED FOR UNKNOWN INDICATION
     Dosage: 3 TIMES DAILY
  16. CHLORPROMAZINE HYDROCHLORIDE. [Concomitant]
     Active Substance: CHLORPROMAZINE HYDROCHLORIDE
     Dosage: 37.5 MG, QD
  17. SUVOREXANT. [Concomitant]
     Active Substance: SUVOREXANT
     Indication: SLEEP DISORDER
     Dosage: 20 MG, QD
  18. NITRAZEPAM [Concomitant]
     Active Substance: NITRAZEPAM
     Indication: PRODUCT USED FOR UNKNOWN INDICATION
     Dosage: 10 MG, QD
  19. PHENOBARBITAL. [Suspect]
     Active Substance: PHENOBARBITAL
     Dosage: 40 MG, QD
     Route: 065
  20. CHLORPROMAZINE HYDROCHLORIDE. [Concomitant]
     Active Substance: CHLORPROMAZINE HYDROCHLORIDE
     Dosage: 25 MG, QD
  21. CLONAZEPAM. [Concomitant]
     Active Substance: CLONAZEPAM
     Indication: SLEEP DISORDER
     Dosage: 0.5 MG, QD
  22. PHENOBARBITAL. [Suspect]
     Active Substance: PHENOBARBITAL
     Indication: INSOMNIA
     Dosage: 70 MG, QD
     Route: 065
  23. EMTRICITABINE/TENOFOVIR DISOPROXIL FUMARATE [Concomitant]
     Active Substance: EMTRICITABINE\TENOFOVIR DISOPROXIL FUMARATE
     Indication: ANTIRETROVIRAL THERAPY
     Dosage: 300 MG, QD
     Dates: start: 20150611

REACTIONS (2)
  - Drug level decreased [Recovered/Resolved]
  - Drug interaction [Unknown]
